FAERS Safety Report 25118119 (Version 4)
Quarter: 2025Q2

REPORT INFORMATION
  Report Type: Spontaneous
  Country: FR (occurrence: FR)
  Receive Date: 20250325
  Receipt Date: 20250509
  Transmission Date: 20250717
  Serious: Yes (Other)
  Sender: PFIZER
  Company Number: None

PATIENT
  Sex: Male
  Weight: 2.225 kg

DRUGS (10)
  1. ALDACTONE [Suspect]
     Active Substance: SPIRONOLACTONE
     Indication: Cardiac disorder
     Dosage: 25 MG, 1X/DAY
     Route: 064
     Dates: end: 20240104
  2. ELIQUIS [Suspect]
     Active Substance: APIXABAN
     Indication: Cardiac disorder
     Dosage: 1 IN THE MORNING, 1 IN THE EVENING (THE MOTHER WAS ON ELIQUIS FOR CARDIAC DISORDER)
     Route: 064
     Dates: end: 20240104
  3. FUROSEMIDE [Suspect]
     Active Substance: FUROSEMIDE
     Indication: Cardiac disorder
     Dosage: 40MG/DAY, THEN INCREASED DURING PREGNANCY TO 80 MG/DAY
     Route: 064
  4. FUROSEMIDE [Suspect]
     Active Substance: FUROSEMIDE
     Dosage: 80 MG, 1X/DAY
     Route: 064
     Dates: end: 20240104
  5. DAPAGLIFLOZIN [Suspect]
     Active Substance: DAPAGLIFLOZIN
     Indication: Cardiac disorder
     Dosage: 10 MG, 1X/DAY
     Route: 064
     Dates: end: 20240104
  6. ENTRESTO [Suspect]
     Active Substance: SACUBITRIL\VALSARTAN
     Indication: Cardiac disorder
     Dosage: 1 IN THE MORNING, 1 IN THE EVENING
     Route: 064
     Dates: end: 20240104
  7. LOVENOX [Suspect]
     Active Substance: ENOXAPARIN SODIUM
     Indication: Cardiac disorder
     Dosage: 6000 UL ANTI-XA/0.6 ML, 6000 ULX2 /DAY
     Route: 064
     Dates: end: 20240104
  8. LOVENOX [Suspect]
     Active Substance: ENOXAPARIN SODIUM
     Indication: Cardiac disorder
     Route: 064
     Dates: start: 20240104, end: 20240122
  9. BISOPROLOL FUMARATE [Suspect]
     Active Substance: BISOPROLOL FUMARATE
     Indication: Cardiac disorder
     Dosage: 2.5 MG, 1X/DAY
     Route: 064
     Dates: end: 20240104
  10. INNOHEP [Suspect]
     Active Substance: TINZAPARIN SODIUM
     Indication: Cardiac disorder
     Dosage: 175 IU/KG/D
     Route: 064
     Dates: start: 20240122, end: 20240724

REACTIONS (3)
  - Maternal exposure during pregnancy [Unknown]
  - Premature baby [Unknown]
  - Low birth weight baby [Recovered/Resolved]

NARRATIVE: CASE EVENT DATE: 20240724
